FAERS Safety Report 14535459 (Version 2)
Quarter: 2018Q1

REPORT INFORMATION
  Report Type: Spontaneous
  Country: US (occurrence: US)
  Receive Date: 20180215
  Receipt Date: 20180329
  Transmission Date: 20180509
  Serious: No
  Sender: FDA-Public Use
  Company Number: PHEH2018US005134

PATIENT
  Sex: Female

DRUGS (2)
  1. NEO AND POLY B SULFATES + HYDROCORTISONE [Suspect]
     Active Substance: BACITRACIN\NEOMYCIN\POLYMYXIN B
     Indication: PRODUCT USED FOR UNKNOWN INDICATION
     Dosage: UNK
     Route: 001
  2. SYNTHROID [Concomitant]
     Active Substance: LEVOTHYROXINE SODIUM
     Indication: PRODUCT USED FOR UNKNOWN INDICATION
     Dosage: 37.5 UG, UNK
     Route: 065

REACTIONS (4)
  - Chronic sinusitis [Unknown]
  - Ear infection [Unknown]
  - Product dropper issue [Unknown]
  - Product container issue [Unknown]
